FAERS Safety Report 7562430-9 (Version None)
Quarter: 2011Q2

REPORT INFORMATION
  Report Type: 
  Country: None (occurrence: None)
  Receive Date: 20110622
  Receipt Date: 20110613
  Transmission Date: 20111010
  Serious: Yes (Hospitalization, Disabling)
  Sender: FDA-Public Use
  Company Number: JP-ASTELLAS-2011JP003484

PATIENT
  Sex: Male
  Weight: 93.5 kg

DRUGS (12)
  1. TELEMINSOFT [Concomitant]
     Indication: CONSTIPATION
     Dosage: 10 MG, UID/QD
     Route: 054
     Dates: start: 20110522, end: 20110524
  2. ALBUMIN (HUMAN) [Concomitant]
     Route: 065
  3. PROGRAF [Suspect]
     Route: 048
  4. MEROPENEM [Suspect]
     Dosage: 500 MG, BID
     Route: 041
     Dates: start: 20110521, end: 20110601
  5. VOLTAREN [Concomitant]
     Indication: PANCREATITIS
     Dosage: 50 MG, UID/QD
     Route: 054
     Dates: start: 20110521, end: 20110525
  6. FUTHAN [Concomitant]
     Dosage: 250 MG, UID/QD
     Route: 041
     Dates: start: 20110521, end: 20110602
  7. OMEPRAZOLE [Suspect]
     Dosage: 20 MG, BID
     Route: 042
     Dates: start: 20110521, end: 20110523
  8. GLYCERIN [Concomitant]
     Indication: CONSTIPATION
     Dosage: 120 ML, UID/QD
     Route: 054
     Dates: start: 20110522, end: 20110526
  9. LEPETAN [Concomitant]
     Indication: PAIN
     Dosage: 0.3 MG, UNKNOWN/D
     Route: 058
     Dates: start: 20110521, end: 20110521
  10. MIRACLID [Concomitant]
     Dosage: 100 KIU, TID
     Route: 065
     Dates: start: 20110521, end: 20110601
  11. PROGRAF [Suspect]
     Indication: LIVER TRANSPLANT
     Dosage: 1 MG, BID
     Route: 048
     Dates: end: 20110523
  12. PENTAZOCINE LACTATE [Concomitant]
     Indication: PAIN
     Dosage: 15 MG, UNKNOWN/D
     Route: 058
     Dates: start: 20110521, end: 20110524

REACTIONS (9)
  - DRUG INEFFECTIVE [None]
  - RENAL IMPAIRMENT [None]
  - ILEUS PARALYTIC [None]
  - LIVER TRANSPLANT REJECTION [None]
  - PANCREATITIS [None]
  - PLATELET COUNT DECREASED [None]
  - HEPATIC FUNCTION ABNORMAL [None]
  - FIBRIN D DIMER INCREASED [None]
  - FIBRIN DEGRADATION PRODUCTS INCREASED [None]
